FAERS Safety Report 20728618 (Version 1)
Quarter: 2022Q2

REPORT INFORMATION
  Report Type: Other
  Country: US (occurrence: None)
  Receive Date: 20220420
  Receipt Date: 20220420
  Transmission Date: 20220721
  Serious: Yes (Hospitalization, Other)
  Sender: FDA-Public Use
  Company Number: US-ROCHE-3077399

PATIENT
  Age: 57 Year
  Sex: Female
  Weight: 46.4 kg

DRUGS (33)
  1. VALCYTE [Suspect]
     Active Substance: VALGANCICLOVIR HYDROCHLORIDE
     Indication: Myelodysplastic syndrome
     Route: 048
     Dates: start: 20220411
  2. VENETOCLAX [Suspect]
     Active Substance: VENETOCLAX
     Indication: Product used for unknown indication
     Route: 058
     Dates: start: 20210419, end: 20211021
  3. BACTRIM [Concomitant]
     Active Substance: SULFAMETHOXAZOLE\TRIMETHOPRIM
     Dates: end: 20220322
  4. NORVASC [Concomitant]
     Active Substance: AMLODIPINE BESYLATE
     Dosage: DOSE: 1 TABLET
     Route: 048
     Dates: start: 20220408
  5. MEPRON (UNITED STATES) [Concomitant]
     Dosage: STRENGTH: 750MG/5 ML
     Route: 048
  6. ENTOCORT EC [Concomitant]
     Active Substance: BUDESONIDE
     Dosage: 2 TIMES A DAY
     Route: 048
     Dates: start: 20220330
  7. AMARYL [Concomitant]
     Active Substance: GLIMEPIRIDE
     Indication: Type 2 diabetes mellitus
     Route: 048
     Dates: start: 20220408
  8. PROTONIX [Concomitant]
     Active Substance: PANTOPRAZOLE SODIUM
     Route: 048
     Dates: start: 20220330
  9. NOXAFIL [Concomitant]
     Active Substance: POSACONAZOLE
     Dosage: TAKE 3 TABLETS BY MOUTH DAILY WITH BREAKFAST
     Route: 048
     Dates: start: 20220330
  10. MEPRON (UNITED STATES) [Concomitant]
     Dosage: 2 TIMES A DAY
     Route: 048
  11. FLOVENT HFA [Concomitant]
     Active Substance: FLUTICASONE PROPIONATE
     Dosage: 220MCG/ACTUATION HFA AEROSOL INHALER?INHALE 1 PUFF BY MOUTH EVERY 12 HOURS
     Route: 048
     Dates: start: 20220321
  12. SPIRIVA RESPIMAT [Concomitant]
     Active Substance: TIOTROPIUM BROMIDE
     Dosage: INHALE 2 PUFFS BY MOUTH ONCE DAILY
     Route: 048
     Dates: start: 20220321
  13. MAGNESIUM OXIDE [Concomitant]
     Active Substance: MAGNESIUM OXIDE
     Route: 048
     Dates: start: 20220308
  14. VEETIDS [Concomitant]
     Active Substance: PENICILLIN V POTASSIUM
     Route: 048
     Dates: start: 20220223
  15. REFRESH PLUS [Concomitant]
     Active Substance: CARBOXYMETHYLCELLULOSE SODIUM
     Dosage: INSTILL 2 DROPS INTO BOTH EYES 4 TIMES DAILY AS NEEDED
     Route: 047
     Dates: start: 20220221
  16. SYNTHROID [Concomitant]
     Active Substance: LEVOTHYROXINE SODIUM
     Dosage: EVERY MORNING BEFORE BREAKFAST
     Route: 048
     Dates: start: 20220221
  17. PROGRAF [Concomitant]
     Active Substance: TACROLIMUS
     Dosage: DOSE: 1 CAPSULE
     Route: 048
  18. PROGRAF [Concomitant]
     Active Substance: TACROLIMUS
     Dosage: DOSE: 1 CAPSULE
     Route: 048
  19. ZOVIRAX [Concomitant]
     Active Substance: ACYCLOVIR
     Route: 048
     Dates: start: 20220207
  20. ARTIFICIAL SALIVA [Concomitant]
     Dosage: AS DIRECTED
     Dates: start: 20220207
  21. MARINOL [Concomitant]
     Active Substance: DRONABINOL
     Dosage: 3 TIMES A DAY BEFORE MEALS
     Route: 048
     Dates: start: 20220207
  22. BREO ELLIPTA [Concomitant]
     Active Substance: FLUTICASONE FUROATE\VILANTEROL TRIFENATATE
     Indication: Bronchiolitis obliterans syndrome
     Dosage: INHALE 2 PUFFS BY MOUTH 2 TIMES A DAY?STRENGTH: 200-25MCG/DOSE
     Route: 048
     Dates: start: 20220207
  23. AQUAPHOR (UNITED STATES) [Concomitant]
     Dosage: AS DIRECTED
     Dates: start: 20220207
  24. AZACITIDINE [Concomitant]
     Active Substance: AZACITIDINE
     Dates: start: 20210222, end: 20211021
  25. BUSULFAN [Concomitant]
     Active Substance: BUSULFAN
     Dosage: TEST DOSE FOR GVHD TRANSPLANT
     Dates: start: 20210715
  26. BUSULFAN [Concomitant]
     Active Substance: BUSULFAN
     Dosage: TEST DOSE FOR GVHD TRANSPLANT
     Dates: start: 20211117
  27. CYCLOPHOSPHAMIDE [Concomitant]
     Active Substance: CYCLOPHOSPHAMIDE
     Dates: start: 20211117
  28. LETERMOVIR [Concomitant]
     Active Substance: LETERMOVIR
     Route: 048
  29. URSODIOL [Concomitant]
     Active Substance: URSODIOL
  30. AMLODIPINE [Concomitant]
     Active Substance: AMLODIPINE BESYLATE
     Indication: Blood pressure increased
     Route: 048
  31. MODERNA COVID-19 VACCINE [Concomitant]
     Active Substance: ELASOMERAN
     Dates: start: 20210118
  32. MODERNA COVID-19 VACCINE [Concomitant]
     Active Substance: ELASOMERAN
     Dates: start: 20210215
  33. EVUSHELD [Concomitant]
     Active Substance: CILGAVIMAB\TIXAGEVIMAB

REACTIONS (19)
  - Chronic graft versus host disease [Unknown]
  - Marrow hyperplasia [Unknown]
  - Infection susceptibility increased [Unknown]
  - Intra-abdominal haematoma [Unknown]
  - Pulmonary mass [Unknown]
  - Thrombocytopenia [Unknown]
  - Blood pressure increased [Unknown]
  - Upper limb fracture [Unknown]
  - Skin hypopigmentation [Unknown]
  - Cough [Recovering/Resolving]
  - Hypothyroidism [Unknown]
  - Loss of personal independence in daily activities [Unknown]
  - Hypogammaglobulinaemia [Unknown]
  - Immunosuppression [Unknown]
  - Off label use [Unknown]
  - Cytomegalovirus viraemia [Unknown]
  - Dysplasia [Unknown]
  - Rales [Unknown]
  - Wheezing [Unknown]

NARRATIVE: CASE EVENT DATE: 20220322
